FAERS Safety Report 17855885 (Version 1)
Quarter: 2020Q2

REPORT INFORMATION
  Report Type: Spontaneous
  Country: DE (occurrence: DE)
  Receive Date: 20200603
  Receipt Date: 20200603
  Transmission Date: 20200714
  Serious: Yes (Hospitalization)
  Sender: FDA-Public Use
  Company Number: NVSC2020DE152470

PATIENT
  Age: 14 Year
  Sex: Male
  Weight: 38 kg

DRUGS (10)
  1. MYCOPHENOLATE MOFETIL. [Suspect]
     Active Substance: MYCOPHENOLATE MOFETIL
     Indication: IMMUNOSUPPRESSION
     Dosage: 800 MG, QD (2 SEPARATED DOSES)
     Route: 048
     Dates: start: 201011
  2. EINSALPHA [Concomitant]
     Indication: CHRONIC KIDNEY DISEASE-MINERAL AND BONE DISORDER
     Dosage: 15 GTT, QD
     Route: 048
     Dates: start: 20100630
  3. FERRO SANOL [Concomitant]
     Active Substance: FERROUS GLYCINE SULFATE
     Indication: IRON DEFICIENCY
     Dosage: 40 GTT, QD
     Route: 048
     Dates: start: 201303
  4. REDUCTO-SPEZIAL [Concomitant]
     Indication: CHRONIC KIDNEY DISEASE-MINERAL AND BONE DISORDER
     Dosage: 602MG/360MG   1- 0 -1 SEIT MINDESTENS 06.2019
     Route: 048
  5. PREDNISOLONE. [Suspect]
     Active Substance: PREDNISOLONE
     Indication: IMMUNOSUPPRESSION
     Dosage: 5 MG, QD
     Route: 048
     Dates: start: 201101
  6. AMLODIPIN [Concomitant]
     Active Substance: AMLODIPINE BESYLATE
     Indication: HYPERTENSION
     Dosage: 10 MG, QD (2 SEPARATED DOSES)
     Route: 048
     Dates: start: 20170901
  7. BICANORM [Concomitant]
     Active Substance: SODIUM BICARBONATE
     Indication: RENAL TUBULAR ACIDOSIS
     Dosage: 3 G, QD (3 SEPARATED DOSES)
     Route: 048
     Dates: start: 201009
  8. TACROLIMUS. [Suspect]
     Active Substance: TACROLIMUS
     Indication: IMMUNOSUPPRESSION
     Dosage: 5.6 MG, QD (2 SEPARATED DOSES)
     Route: 048
     Dates: start: 201703, end: 20190701
  9. MAGNESIUM VERLA [Concomitant]
     Active Substance: MAGNESIUM
     Indication: BLOOD MAGNESIUM ABNORMAL
     Dosage: 3.3 MMOL, QD (2 SEPARATED DOSES)
     Route: 048
     Dates: start: 20180205
  10. VIGANTOL [Concomitant]
     Indication: VITAMIN D DEFICIENCY
     Dosage: 8 GTT, QD (20000IE/ML)
     Route: 048
     Dates: start: 201006

REACTIONS (3)
  - Abdominal pain [Recovered/Resolved]
  - Enteritis [Recovered/Resolved]
  - Decreased appetite [Recovered/Resolved]

NARRATIVE: CASE EVENT DATE: 20190630
